FAERS Safety Report 23251346 (Version 2)
Quarter: 2024Q4

REPORT INFORMATION
  Report Type: Spontaneous
  Country: US (occurrence: US)
  Receive Date: 20231201
  Receipt Date: 20241022
  Transmission Date: 20250115
  Serious: Yes (Other)
  Sender: ALIMERA
  Company Number: US-ALIMERA SCIENCES INC.-US-A16013-23-000639

PATIENT
  Sex: Male

DRUGS (2)
  1. ILUVIEN [Suspect]
     Active Substance: FLUOCINOLONE ACETONIDE
     Indication: Diabetic retinal oedema
     Dosage: 0.25 MICROGRAM, QD, -RIGHT EYE
     Route: 031
     Dates: start: 20221013
  2. ILUVIEN [Suspect]
     Active Substance: FLUOCINOLONE ACETONIDE
     Dosage: 0.25 MICROGRAM, QD, -LEFT EYE
     Route: 031
     Dates: start: 20221027

REACTIONS (3)
  - Glaucoma [Unknown]
  - Intraocular pressure increased [Unknown]
  - Glaucoma drainage device placement [Recovered/Resolved]

NARRATIVE: CASE EVENT DATE: 20230401
